FAERS Safety Report 4949026-X (Version None)
Quarter: 2006Q1

REPORT INFORMATION
  Report Type: 
  Country: None (occurrence: None)
  Receive Date: 20060321
  Receipt Date: 20060213
  Transmission Date: 20060701
  Serious: Yes (Hospitalization, Other)
  Sender: FDA-Public Use
  Company Number: US-GLAXOSMITHKLINE-A0594156A

PATIENT
  Age: 81 Year
  Sex: Female
  Weight: 50 kg

DRUGS (10)
  1. REQUIP [Suspect]
     Indication: RESTLESS LEGS SYNDROME
     Route: 048
     Dates: start: 20060113, end: 20060210
  2. PAXIL [Concomitant]
     Dosage: 20MG AT NIGHT
     Route: 048
  3. LEVOTHYROXINE SODIUM [Concomitant]
     Dosage: 100MCG PER DAY
     Route: 048
  4. BENICAR [Concomitant]
     Dosage: 20MG IN THE MORNING
  5. CELEBREX [Concomitant]
     Dosage: 200MG IN THE MORNING
  6. ASPIRIN [Concomitant]
     Dosage: 162.5MG IN THE MORNING
  7. ZOCOR [Concomitant]
     Dosage: 20MG PER DAY
  8. HYDROXYZINE [Concomitant]
     Dosage: 90MG AT NIGHT
  9. AMBIEN [Concomitant]
     Dosage: 5MG AT NIGHT
     Route: 048
  10. NEURONTIN [Concomitant]
     Dosage: 300MG AT NIGHT

REACTIONS (2)
  - ARRHYTHMIA SUPRAVENTRICULAR [None]
  - ATRIAL FIBRILLATION [None]
